FAERS Safety Report 7283705-7 (Version None)
Quarter: 2011Q1

REPORT INFORMATION
  Report Type: 
  Country: None (occurrence: None)
  Receive Date: 20110209
  Receipt Date: 20110202
  Transmission Date: 20110831
  Serious: Yes (Death)
  Sender: FDA-Public Use
  Company Number: DE-ROCHE-750215

PATIENT
  Sex: Male
  Weight: 74 kg

DRUGS (3)
  1. ERBITUX [Suspect]
     Route: 065
  2. IRINOTECAN HCL [Suspect]
     Route: 065
  3. CAPECITABINE [Suspect]
     Route: 065

REACTIONS (1)
  - SEPSIS [None]
